FAERS Safety Report 17761936 (Version 1)
Quarter: 2020Q2

REPORT INFORMATION
  Report Type: Spontaneous
  Country: BE (occurrence: BE)
  Receive Date: 20200508
  Receipt Date: 20200508
  Transmission Date: 20200714
  Serious: Yes (Hospitalization)
  Sender: FDA-Public Use
  Company Number: BE-ALLERGAN-2017842US

PATIENT
  Sex: Female
  Weight: 52.5 kg

DRUGS (15)
  1. DUROGESIC [Concomitant]
     Active Substance: FENTANYL
     Dosage: UNK
     Dates: start: 20200203
  2. DAFALGAN  FORTE [Concomitant]
     Dosage: UNK
     Dates: start: 20200130
  3. MOVICOL [Concomitant]
     Active Substance: POLYETHYLENE GLYCOL 3350\POTASSIUM CHLORIDE\SODIUM BICARBONATE\SODIUM CHLORIDE
     Dosage: UNK
     Dates: start: 20200229
  4. SERELYS [Concomitant]
     Dosage: UNK
     Dates: start: 20191106
  5. PANTOMED                           /00178901/ [Concomitant]
     Active Substance: DEXPANTHENOL
     Dosage: UNK
     Dates: start: 20200201
  6. LITICAN                            /00690801/ [Concomitant]
     Active Substance: ALIZAPRIDE
     Dosage: UNK
     Dates: start: 20191210
  7. ALPRAZOLAM. [Concomitant]
     Active Substance: ALPRAZOLAM
     Dosage: UNK
     Dates: start: 20200202
  8. LYRICA [Concomitant]
     Active Substance: PREGABALIN
     Dosage: UNK
     Dates: start: 20200130
  9. MORPHINE SULFATE UNK [Suspect]
     Active Substance: MORPHINE SULFATE
     Indication: PRODUCT USED FOR UNKNOWN INDICATION
  10. FULVESTRANT. [Suspect]
     Active Substance: FULVESTRANT
     Indication: BREAST CANCER
     Dosage: 500 MG
     Route: 030
     Dates: start: 20200219
  11. LAXOBERON [Concomitant]
     Active Substance: SODIUM PICOSULFATE
     Dosage: UNK
     Dates: start: 20200203
  12. XARELTO [Concomitant]
     Active Substance: RIVAROXABAN
     Dosage: UNK
     Dates: start: 20190604
  13. D-CURE [Concomitant]
     Active Substance: CHOLECALCIFEROL
     Dosage: UNK
     Dates: start: 20200210
  14. GAVISCON                           /00237601/ [Concomitant]
     Active Substance: ALUMINUM HYDROXIDE\MAGNESIUM CARBONATE
     Dosage: UNK
     Dates: start: 20200203
  15. REDOMEX [Concomitant]
     Active Substance: AMITRIPTYLINE HYDROCHLORIDE
     Dosage: UNK
     Dates: start: 20200206

REACTIONS (4)
  - General physical health deterioration [Recovered/Resolved]
  - Nausea [Recovered/Resolved]
  - Vomiting [Recovered/Resolved]
  - Drug intolerance [Not Recovered/Not Resolved]

NARRATIVE: CASE EVENT DATE: 20200130
